FAERS Safety Report 17563594 (Version 1)
Quarter: 2020Q1

REPORT INFORMATION
  Report Type: Spontaneous
  Country: PT (occurrence: PT)
  Receive Date: 20200320
  Receipt Date: 20200320
  Transmission Date: 20200409
  Serious: Yes (Other)
  Sender: FDA-Public Use
  Company Number: PT-AMGEN-PRTSP2020044156

PATIENT
  Age: 58 Year
  Sex: Female

DRUGS (1)
  1. ADALIMUMAB [Suspect]
     Active Substance: ADALIMUMAB
     Indication: PSORIASIS
     Dosage: 40 MILLIGRAM
     Route: 058

REACTIONS (10)
  - Diplopia [Recovering/Resolving]
  - Administration site reaction [Recovering/Resolving]
  - Tinnitus [Recovering/Resolving]
  - Dyspepsia [Recovering/Resolving]
  - Paraesthesia [Recovering/Resolving]
  - Eczema [Recovering/Resolving]
  - Onychomycosis [Recovering/Resolving]
  - Eye swelling [Recovering/Resolving]
  - Visual impairment [Recovering/Resolving]
  - Eczema eyelids [Recovering/Resolving]
